FAERS Safety Report 8081632-9 (Version None)
Quarter: 2012Q1

REPORT INFORMATION
  Report Type: 
  Country: None (occurrence: None)
  Receive Date: 20120130
  Receipt Date: 20120119
  Transmission Date: 20120608
  Serious: Yes (Death)
  Sender: FDA-Public Use
  Company Number: JP-PFIZER INC-2011294175

PATIENT
  Age: 76 Year
  Sex: Male
  Weight: 48 kg

DRUGS (23)
  1. ERBITUX [Concomitant]
     Indication: LARGE INTESTINE CARCINOMA
     Dosage: 564 MG/M2, UNK
     Route: 041
     Dates: start: 20111012
  2. HICORT [Concomitant]
     Indication: PREMEDICATION
     Dosage: 8 MG, UNK
     Route: 041
     Dates: start: 20111012, end: 20111116
  3. ALOXI [Concomitant]
     Indication: PREMEDICATION
     Dosage: 0.75 MG, UNK
     Route: 041
     Dates: start: 20111012, end: 20111102
  4. ADSORBIN [Concomitant]
     Dosage: 3 G, UNK
     Route: 048
     Dates: start: 20111004, end: 20111116
  5. HANGE-SHASHIN-TO [Concomitant]
     Indication: PROPHYLAXIS AGAINST DIARRHOEA
     Dosage: 2.5 G, 3X/DAY
     Route: 048
     Dates: start: 20111012, end: 20111116
  6. MOTILIUM [Concomitant]
     Indication: PROPHYLAXIS OF NAUSEA AND VOMITING
     Dosage: 10 MG, 3X/DAY
     Route: 048
     Dates: start: 20111012, end: 20111109
  7. LASIX [Concomitant]
     Indication: OEDEMA PERIPHERAL
     Dosage: 20 MG, UNK
     Route: 048
     Dates: start: 20111116, end: 20111121
  8. PRIMPERAN TAB [Concomitant]
     Indication: PREMEDICATION
     Dosage: 10 MG, UNK
     Route: 041
     Dates: start: 20111012, end: 20111116
  9. TS-1 [Concomitant]
     Indication: LARGE INTESTINE CARCINOMA
     Dosage: 80 MG/DAY
     Route: 048
     Dates: end: 20111025
  10. TS-1 [Concomitant]
     Dosage: 40 MG, 2X/DAY
     Route: 048
     Dates: start: 20111012, end: 20111115
  11. POLARAMINE [Concomitant]
     Indication: PREMEDICATION
     Dosage: 5 MG, UNK
     Route: 041
     Dates: start: 20111012, end: 20111116
  12. EMEND [Concomitant]
     Indication: PROPHYLAXIS
     Dosage: 125-80 MG
     Route: 048
     Dates: start: 20111012, end: 20111014
  13. MIYA BM [Concomitant]
     Dosage: 3 G, UNK
     Route: 048
     Dates: start: 20111002, end: 20111116
  14. SODIUM BICARBONATE [Concomitant]
     Dosage: UNK
     Route: 042
     Dates: start: 20111122, end: 20111122
  15. ERBITUX [Concomitant]
     Dosage: 352.5 MG/BODY
     Route: 041
     Dates: start: 20111019, end: 20111116
  16. ALDACTONE [Concomitant]
     Indication: OEDEMA PERIPHERAL
     Dosage: 25 MG, UNK
     Route: 048
     Dates: start: 20111116, end: 20111121
  17. DOPAMINE HYDROCHLORIDE [Concomitant]
     Dosage: UNK
     Route: 041
     Dates: start: 20111122, end: 20111122
  18. UNASYN [Concomitant]
     Dosage: UNK
     Route: 041
     Dates: start: 20111122, end: 20111122
  19. IRINOTECAN HCL [Suspect]
     Indication: LARGE INTESTINE CARCINOMA
     Dosage: 222.6 MG/BODY (157.9 MG/M2)
     Route: 041
     Dates: start: 20111012
  20. LEVOFLOXACIN [Concomitant]
     Indication: CYSTITIS
     Dosage: 500 MG, UNK
     Route: 048
     Dates: start: 20111116, end: 20111120
  21. IRINOTECAN HCL [Suspect]
     Dosage: 220 MG/BODY (156 MG/M2)
     Route: 041
     Dates: start: 20111102
  22. BETAMETHASONE [Concomitant]
     Indication: PROPHYLAXIS OF NAUSEA AND VOMITING
     Dosage: 2 MG, UNK
     Route: 048
     Dates: start: 20111013, end: 20111105
  23. EPINEPHRINE [Concomitant]
     Dosage: UNK
     Route: 058
     Dates: start: 20111122, end: 20111122

REACTIONS (5)
  - DIARRHOEA [None]
  - ACUTE RESPIRATORY FAILURE [None]
  - PNEUMONIA ASPIRATION [None]
  - CIRCULATORY COLLAPSE [None]
  - DECREASED APPETITE [None]
